FAERS Safety Report 6031851-8 (Version None)
Quarter: 2008Q4

REPORT INFORMATION
  Report Type: 
  Country: None (occurrence: None)
  Receive Date: 20081224
  Receipt Date: 20080827
  Transmission Date: 20090506
  Serious: No
  Sender: FDA-Public Use
  Company Number: 2008PV036596

PATIENT
  Age: 70 Year
  Sex: Male

DRUGS (6)
  1. SYMLIN [Suspect]
     Indication: TYPE 1 DIABETES MELLITUS
     Dosage: 90 MCG; TID; SC, 120 MCG; TID; SC, 60 MCG; TID; SC, 30 MCG; TID; SC
     Route: 058
     Dates: start: 20060101, end: 20060101
  2. SYMLIN [Suspect]
     Indication: TYPE 1 DIABETES MELLITUS
     Dosage: 90 MCG; TID; SC, 120 MCG; TID; SC, 60 MCG; TID; SC, 30 MCG; TID; SC
     Route: 058
     Dates: start: 20060101, end: 20060101
  3. SYMLIN [Suspect]
     Indication: TYPE 1 DIABETES MELLITUS
     Dosage: 90 MCG; TID; SC, 120 MCG; TID; SC, 60 MCG; TID; SC, 30 MCG; TID; SC
     Route: 058
     Dates: start: 20080701, end: 20080101
  4. SYMLIN [Suspect]
     Indication: TYPE 1 DIABETES MELLITUS
     Dosage: 90 MCG; TID; SC, 120 MCG; TID; SC, 60 MCG; TID; SC, 30 MCG; TID; SC
     Route: 058
     Dates: start: 20060101, end: 20080301
  5. SYMLIN [Suspect]
     Indication: TYPE 1 DIABETES MELLITUS
     Dosage: 90 MCG; TID; SC, 120 MCG; TID; SC, 60 MCG; TID; SC, 30 MCG; TID; SC
     Route: 058
     Dates: start: 20080101
  6. NOVOLOG [Concomitant]

REACTIONS (4)
  - ABDOMINAL DISTENSION [None]
  - DIABETES MELLITUS INADEQUATE CONTROL [None]
  - DYSPEPSIA [None]
  - NAUSEA [None]
